FAERS Safety Report 16046904 (Version 2)
Quarter: 2020Q1

REPORT INFORMATION
  Report Type: Spontaneous
  Country: GB (occurrence: GB)
  Receive Date: 20190307
  Receipt Date: 20200127
  Transmission Date: 20200409
  Serious: Yes (Other)
  Sender: FDA-Public Use
  Company Number: GB-BAUSCH-BL-2019-006745

PATIENT
  Age: 67 Year
  Sex: Female

DRUGS (2)
  1. KELP [Concomitant]
     Active Substance: KELP
     Indication: PRODUCT USED FOR UNKNOWN INDICATION
  2. MINIMS TROPICAMIDE [Suspect]
     Active Substance: TROPICAMIDE
     Indication: PUPIL DILATION PROCEDURE
     Dosage: INSTILLED IN EACH EYE, 1 TOTAL
     Route: 047

REACTIONS (2)
  - Sleep disorder [Not Recovered/Not Resolved]
  - Asthenopia [Not Recovered/Not Resolved]
